FAERS Safety Report 23201534 (Version 1)
Quarter: 2023Q4

REPORT INFORMATION
  Report Type: Spontaneous
  Country: IT (occurrence: IT)
  Receive Date: 20231118
  Receipt Date: 20231118
  Transmission Date: 20240110
  Serious: Yes (Hospitalization)
  Sender: FDA-Public Use
  Company Number: None

PATIENT
  Age: 16 Year
  Sex: Male
  Weight: 88 kg

DRUGS (4)
  1. BUSULFAN [Suspect]
     Active Substance: BUSULFAN
     Indication: Autologous haematopoietic stem cell transplant
     Dosage: UNIT DOSE:58.4MILLIGRAM,FREQUENCY TIME:1 DAYS, DURATION: 4 DAYS
     Dates: start: 20230919, end: 20230923
  2. BACTRIM [Concomitant]
     Active Substance: SULFAMETHOXAZOLE\TRIMETHOPRIM
     Indication: Prophylaxis
     Dosage: 2 TABLETS OF 800+160 BACTRIM, FREQUENCY TIME:12 HOURS,DURATION:8 DAYS
     Dates: start: 20231010, end: 20231018
  3. URSODIOL [Concomitant]
     Active Substance: URSODIOL
     Indication: Prophylaxis
     Dosage: 600 MILLIGRAM DAILY; 300 MG X2 DAY
  4. ACYCLOVIR [Concomitant]
     Active Substance: ACYCLOVIR
     Indication: Prophylaxis
     Dosage: 400 MG X 3 DAYS

REACTIONS (3)
  - Hypertransaminasaemia [Recovering/Resolving]
  - Venoocclusive liver disease [Recovered/Resolved]
  - Abdominal pain [Recovered/Resolved]

NARRATIVE: CASE EVENT DATE: 20231014
